FAERS Safety Report 23756617 (Version 8)
Quarter: 2025Q3

REPORT INFORMATION
  Report Type: Report from Study
  Country: US (occurrence: US)
  Receive Date: 20240418
  Receipt Date: 20250801
  Transmission Date: 20251021
  Serious: Yes (Other)
  Sender: SUNOVION
  Company Number: US-MYOVANT SCIENCES GMBH-2024MYSCI0400476

PATIENT

DRUGS (11)
  1. ORGOVYX [Suspect]
     Active Substance: RELUGOLIX
     Indication: Prostate cancer
     Dosage: 360 MILLIGRAM, ONE TIME DOSE
     Route: 048
     Dates: start: 20240402, end: 20240402
  2. ORGOVYX [Suspect]
     Active Substance: RELUGOLIX
     Dosage: 120 MILLIGRAM, QD
     Route: 048
     Dates: start: 20240403
  3. ORGOVYX [Suspect]
     Active Substance: RELUGOLIX
     Route: 048
  4. ORGOVYX [Suspect]
     Active Substance: RELUGOLIX
     Route: 048
  5. ORGOVYX [Suspect]
     Active Substance: RELUGOLIX
     Route: 048
  6. ORGOVYX [Suspect]
     Active Substance: RELUGOLIX
     Dosage: 120 MG, QD
     Route: 048
     Dates: start: 20240403
  7. ORGOVYX [Suspect]
     Active Substance: RELUGOLIX
     Dosage: 120 MG, QD
     Route: 048
     Dates: start: 20240403
  8. XANAX [Suspect]
     Active Substance: ALPRAZOLAM
     Indication: Anxiety
     Route: 065
  9. CYMBALTA [Suspect]
     Active Substance: DULOXETINE HYDROCHLORIDE
     Indication: Major depression
     Route: 065
  10. CYMBALTA [Suspect]
     Active Substance: DULOXETINE HYDROCHLORIDE
     Indication: Suicidal ideation
     Route: 065
  11. SEMAGLUTIDE [Concomitant]
     Active Substance: SEMAGLUTIDE
     Indication: Product used for unknown indication
     Route: 065

REACTIONS (25)
  - Diabetes mellitus inadequate control [Not Recovered/Not Resolved]
  - Suicidal ideation [Unknown]
  - Bipolar disorder [Unknown]
  - Anxiety [Not Recovered/Not Resolved]
  - Thinking abnormal [Unknown]
  - Vertigo [Recovered/Resolved]
  - Nocturia [Unknown]
  - Mental status changes [Unknown]
  - Sexual dysfunction [Unknown]
  - Adjustment disorder with depressed mood [Not Recovered/Not Resolved]
  - Memory impairment [Unknown]
  - Androgen deficiency [Unknown]
  - Crying [Unknown]
  - Weight abnormal [Unknown]
  - General physical health deterioration [Unknown]
  - Drug intolerance [Unknown]
  - Abdominal pain upper [Unknown]
  - Night sweats [Unknown]
  - Dizziness [Unknown]
  - Hyperhidrosis [Unknown]
  - Fatigue [Unknown]
  - Arthralgia [Unknown]
  - Blood triglycerides increased [Unknown]
  - Diarrhoea [Recovered/Resolved]
  - Hot flush [Unknown]

NARRATIVE: CASE EVENT DATE: 20240401
